FAERS Safety Report 18911995 (Version 4)
Quarter: 2021Q2

REPORT INFORMATION
  Report Type: Report from Study
  Country: None (occurrence: US)
  Receive Date: 20210219
  Receipt Date: 20210413
  Transmission Date: 20210717
  Serious: Yes (Hospitalization)
  Sender: FDA-Public Use
  Company Number: US-ABBVIE-21K-163-3778550-00

PATIENT
  Age: 64 Year
  Sex: Female
  Weight: 77.18 kg

DRUGS (6)
  1. SKYRIZI [Suspect]
     Active Substance: RISANKIZUMAB-RZAA
     Indication: PSORIASIS
     Route: 058
     Dates: start: 202001
  2. COVID?19  VACCINE [Concomitant]
     Route: 030
     Dates: start: 20210319, end: 20210319
  3. SKYRIZI [Suspect]
     Active Substance: RISANKIZUMAB-RZAA
     Indication: PSORIASIS
  4. PNEUMONIA VACCINE [Concomitant]
     Active Substance: PNEUMOCOCCAL VACCINE POLYVALENT
     Indication: PRODUCT USED FOR UNKNOWN INDICATION
  5. VARICELLA?ZOSTER VACCINE NOS [Concomitant]
     Active Substance: VARICELLA-ZOSTER VACCINE
     Indication: PRODUCT USED FOR UNKNOWN INDICATION
  6. COVID?19  VACCINE [Concomitant]
     Indication: COVID-19 IMMUNISATION
     Route: 030
     Dates: start: 20210225, end: 20210225

REACTIONS (12)
  - Loss of consciousness [Recovered/Resolved]
  - Fall [Recovering/Resolving]
  - COVID-19 [Recovered/Resolved]
  - Head injury [Recovering/Resolving]
  - Nodule [Recovering/Resolving]
  - Skull fracture [Recovering/Resolving]
  - Skull fractured base [Recovering/Resolving]
  - Exposure to SARS-CoV-2 [Unknown]
  - Soft tissue swelling [Recovering/Resolving]
  - Concussion [Recovering/Resolving]
  - Cerebral haemorrhage [Unknown]
  - Brain injury [Recovering/Resolving]

NARRATIVE: CASE EVENT DATE: 20210125
